FAERS Safety Report 6235100-7 (Version None)
Quarter: 2009Q2

REPORT INFORMATION
  Report Type: 
  Country: None (occurrence: None)
  Receive Date: 20090615
  Receipt Date: 20090603
  Transmission Date: 20091009
  Serious: Yes (Hospitalization)
  Sender: FDA-Public Use
  Company Number: 6051941

PATIENT
  Age: 79 Year
  Sex: Female

DRUGS (5)
  1. LEVOTHYROXINE SODIUM [Suspect]
     Indication: HYPOTHYROIDISM
     Dosage: 1 DOSAGE FORMS (1 DOSAGE FORMS,1 IN 1 D) ORAL
     Route: 048
  2. PREVISCAN(20 MG, TABLET) (FLUINDIONE) [Suspect]
     Indication: THROMBOSIS PROPHYLAXIS
     Dosage: ACCORDING TO INR ORAL
     Route: 048
     Dates: start: 20090206, end: 20090505
  3. ATORVASTATIN CALCIUM [Suspect]
     Indication: HYPERCHOLESTEROLAEMIA
     Dosage: 1 DOSAGE FORMS (1 DOSAGE FORMS,1 IN 1 D) ORAL
     Route: 048
     Dates: start: 20090215
  4. NEXIUM [Concomitant]
  5. FLECAINE LP [Concomitant]

REACTIONS (2)
  - DRUG INTERACTION [None]
  - SUBDURAL HAEMATOMA [None]
